FAERS Safety Report 5041120-0 (Version None)
Quarter: 2006Q3

REPORT INFORMATION
  Report Type: 
  Country: None (occurrence: None)
  Receive Date: 20060703
  Receipt Date: 20060623
  Transmission Date: 20061208
  Serious: Yes (Other)
  Sender: FDA-Public Use
  Company Number: US-ROCHE-453027

PATIENT
  Age: 30 Year
  Sex: Female

DRUGS (1)
  1. ACCUTANE [Suspect]
     Indication: DRUG USE FOR UNKNOWN INDICATION
     Route: 048
     Dates: start: 19881115, end: 19890515

REACTIONS (2)
  - ABORTION COMPLETE [None]
  - DRUG EXPOSURE BEFORE PREGNANCY [None]
